FAERS Safety Report 20877669 (Version 1)
Quarter: 2022Q2

REPORT INFORMATION
  Report Type: Spontaneous
  Country: RU (occurrence: None)
  Receive Date: 20220526
  Receipt Date: 20220526
  Transmission Date: 20220721
  Serious: Yes (Other)
  Sender: FDA-Public Use
  Company Number: RU-ROCHE-3101203

PATIENT
  Sex: Male

DRUGS (5)
  1. ATEZOLIZUMAB [Suspect]
     Active Substance: ATEZOLIZUMAB
     Indication: Lung adenocarcinoma
     Route: 041
     Dates: start: 20201227, end: 20201229
  2. BEVACIZUMAB [Suspect]
     Active Substance: BEVACIZUMAB
     Indication: Lung adenocarcinoma
     Route: 041
     Dates: start: 20201227, end: 20201229
  3. PEMETREXED [Suspect]
     Active Substance: PEMETREXED
     Indication: Lung adenocarcinoma
     Route: 041
     Dates: start: 20211022
  4. CISPLATIN [Suspect]
     Active Substance: CISPLATIN
     Indication: Lung adenocarcinoma
     Route: 042
     Dates: start: 20211013
  5. CARBOPLATIN [Suspect]
     Active Substance: CARBOPLATIN
     Indication: Lung adenocarcinoma
     Route: 041
     Dates: start: 20201227, end: 20201229

REACTIONS (10)
  - Neoplasm [Unknown]
  - Pleural fibrosis [Unknown]
  - Emphysema [Unknown]
  - Osteodystrophy [Unknown]
  - Metastases to bone [Unknown]
  - Back pain [Unknown]
  - Oesophageal varices haemorrhage [Unknown]
  - Bone disorder [Unknown]
  - Splenomegaly [Unknown]
  - Cystic lung disease [Unknown]
